FAERS Safety Report 7078110-2 (Version None)
Quarter: 2010Q4

REPORT INFORMATION
  Report Type: 
  Country: None (occurrence: None)
  Receive Date: 20101102
  Receipt Date: 20101025
  Transmission Date: 20110411
  Serious: No
  Sender: FDA-Public Use
  Company Number: US-BIOGENIDEC-2010BI037565

PATIENT
  Sex: Female

DRUGS (6)
  1. TYSABRI [Suspect]
     Indication: MULTIPLE SCLEROSIS
     Route: 042
  2. AVONEX [Concomitant]
     Indication: MULTIPLE SCLEROSIS
     Route: 030
  3. AVONEX [Concomitant]
     Route: 030
  4. AVONEX [Concomitant]
     Route: 030
     Dates: start: 20100301, end: 20100101
  5. REBIF [Concomitant]
     Indication: MULTIPLE SCLEROSIS
  6. COPAXONE [Concomitant]
     Indication: MULTIPLE SCLEROSIS

REACTIONS (4)
  - ADVERSE DRUG REACTION [None]
  - ANXIETY [None]
  - INFLUENZA LIKE ILLNESS [None]
  - MUSCLE SPASMS [None]
